FAERS Safety Report 14250732 (Version 8)
Quarter: 2019Q3

REPORT INFORMATION
  Report Type: Spontaneous
  Country: US (occurrence: US)
  Receive Date: 20171205
  Receipt Date: 20190719
  Transmission Date: 20191004
  Serious: Yes (Other)
  Sender: FDA-Public Use
  Company Number: US-PFIZER INC-2017514139

PATIENT
  Age: 75 Year
  Sex: Female
  Weight: 95.71 kg

DRUGS (6)
  1. TIKOSYN [Suspect]
     Active Substance: DOFETILIDE
     Indication: ATRIAL FLUTTER
     Dosage: 0.5 MG, UNK
  2. WARFARIN [Concomitant]
     Active Substance: WARFARIN
     Indication: ANTICOAGULANT THERAPY
     Dosage: 750 MG, WEEKLY
  3. TIKOSYN [Suspect]
     Active Substance: DOFETILIDE
     Indication: ATRIAL FIBRILLATION
     Dosage: UNK, 2X/DAY, (500MCG OR 0.5MG)
     Route: 048
  4. WARFARIN [Concomitant]
     Active Substance: WARFARIN
     Dosage: 500 MG, UNK [REST OF WEEK]
  5. WARFARIN [Concomitant]
     Active Substance: WARFARIN
     Dosage: UNK, 2X/DAY [UNK (5MG AND UP TO 7.5MG TWICE A WEEK)]
     Route: 048
     Dates: start: 201811
  6. VALSARTAN. [Concomitant]
     Active Substance: VALSARTAN
     Indication: BLOOD PRESSURE ABNORMAL
     Dosage: 180 MG, 1X/DAY (ONCE IN THE EVENING)
     Route: 048

REACTIONS (15)
  - Vomiting [Recovered/Resolved]
  - Myocardial infarction [Unknown]
  - Drug ineffective [Unknown]
  - Abdominal discomfort [Unknown]
  - Nausea [Recovered/Resolved]
  - Body height decreased [Unknown]
  - Fatigue [Unknown]
  - Dehydration [Unknown]
  - Visual impairment [Unknown]
  - Weight increased [Unknown]
  - Gastrooesophageal reflux disease [Unknown]
  - Dyspnoea [Unknown]
  - Tooth fracture [Unknown]
  - Follicle centre lymphoma, follicular grade I, II, III recurrent [Unknown]
  - Malaise [Unknown]

NARRATIVE: CASE EVENT DATE: 2018
